FAERS Safety Report 16716012 (Version 1)
Quarter: 2019Q4

REPORT INFORMATION
  Report Type: Spontaneous
  Country: IN (occurrence: IN)
  Receive Date: 20190817
  Receipt Date: 20190817
  Transmission Date: 20200122
  Serious: Yes (Disabling)
  Sender: FDA-Public Use
  Company Number: None

PATIENT
  Age: 24 Year
  Weight: 53 kg

DRUGS (2)
  1. MULTIVITAIME SYRUP [Concomitant]
  2. ZENFLOX UTI [Suspect]
     Active Substance: FLAVOXATE\OFLOXACIN
     Indication: URINARY TRACT INFECTION
     Dosage: ?          QUANTITY:1 TABLET(S);?
     Route: 048
     Dates: start: 20190814, end: 20190814

REACTIONS (7)
  - Arthritis [None]
  - Suicidal ideation [None]
  - Nightmare [None]
  - Fear of disease [None]
  - Depression [None]
  - Sleep disorder [None]
  - Joint noise [None]

NARRATIVE: CASE EVENT DATE: 20190814
